FAERS Safety Report 7628207-0 (Version None)
Quarter: 2011Q3

REPORT INFORMATION
  Report Type: 
  Country: None (occurrence: None)
  Receive Date: 20110722
  Receipt Date: 20110711
  Transmission Date: 20111222
  Serious: Yes (Hospitalization, Other)
  Sender: FDA-Public Use
  Company Number: US-ELI_LILLY_AND_COMPANY-US201012005184

PATIENT
  Sex: Female
  Weight: 50.794 kg

DRUGS (16)
  1. POTASSIUM                          /00031402/ [Concomitant]
     Dosage: 10 MEQ, UNK
  2. FORTEO [Suspect]
     Dosage: 20 UG, QD
     Route: 058
  3. VOLTAREN                                /SCH/ [Concomitant]
     Dosage: 75 MG, DAILY (1/D)
  4. CIPROFLOXACIN HCL [Concomitant]
     Dosage: UNK, UNKNOWN
     Route: 065
  5. MORPHINE SULFATE [Concomitant]
     Dosage: 100 MG, EVERY 8 HRS
  6. MAXZIDE [Concomitant]
     Dosage: 25 MG, DAILY (1/D)
  7. KLOR-CON [Concomitant]
     Dosage: 10-10 MEQ, UNK
  8. COZAAR [Concomitant]
  9. PERCOCET [Concomitant]
     Dosage: EVERY 4 HRS
  10. CELEXA [Concomitant]
     Dosage: 40 MG, 2/D
  11. LASIX [Concomitant]
     Dosage: 40 MG, DAILY (1/D) (1/2 TO 1 TABLET DAILY)
  12. PROMETHAZINE [Concomitant]
     Indication: NAUSEA
     Dosage: 25 MG, AS NEEDED
  13. FORTEO [Suspect]
     Indication: OSTEOPOROSIS
     Dosage: 20 UG, DAILY (1/D)
     Route: 058
     Dates: start: 20100801, end: 20100910
  14. LORTAB [Concomitant]
     Dosage: 10.5 MG, AS NEEDED
  15. SYNTHROID [Concomitant]
     Dosage: 25 MG, DAILY (1/D)
  16. FENTANYL [Concomitant]

REACTIONS (9)
  - OSTEOARTHRITIS [None]
  - DRUG DOSE OMISSION [None]
  - FIBROMYALGIA [None]
  - HYPERSENSITIVITY [None]
  - PNEUMONIA [None]
  - RASH MACULAR [None]
  - CONTUSION [None]
  - RENAL FAILURE [None]
  - RENAL CELL CARCINOMA RECURRENT [None]
